FAERS Safety Report 21062148 (Version 1)
Quarter: 2022Q3

REPORT INFORMATION
  Report Type: Report from Study
  Country: US (occurrence: US)
  Receive Date: 20220711
  Receipt Date: 20220711
  Transmission Date: 20221026
  Serious: Yes (Hospitalization, Other)
  Sender: FDA-Public Use
  Company Number: US-BoehringerIngelheim-2021-BI-144077

PATIENT
  Age: 78 Year
  Sex: Female

DRUGS (3)
  1. OFEV [Suspect]
     Active Substance: NINTEDANIB
     Indication: Idiopathic pulmonary fibrosis
     Route: 048
     Dates: start: 20210401
  2. OFEV [Suspect]
     Active Substance: NINTEDANIB
     Indication: Interstitial lung disease
     Route: 048
     Dates: start: 20211201
  3. OFEV [Suspect]
     Active Substance: NINTEDANIB
     Indication: Fibrosis
     Route: 048
     Dates: start: 20220101, end: 20220606

REACTIONS (31)
  - Internal haemorrhage [Recovering/Resolving]
  - Cardiac disorder [Not Recovered/Not Resolved]
  - Back pain [Unknown]
  - Pulmonary thrombosis [Recovered/Resolved]
  - Diarrhoea [Not Recovered/Not Resolved]
  - Asthenia [Recovering/Resolving]
  - Cough [Not Recovered/Not Resolved]
  - Headache [Unknown]
  - Depression [Not Recovered/Not Resolved]
  - Oedema peripheral [Recovering/Resolving]
  - Hypokalaemia [Unknown]
  - Tremor [Recovering/Resolving]
  - Vomiting [Unknown]
  - Nausea [Unknown]
  - Dyspnoea [Not Recovered/Not Resolved]
  - Gout [Unknown]
  - Hypothyroidism [Unknown]
  - Weight decreased [Unknown]
  - Retching [Unknown]
  - Dizziness [Unknown]
  - Influenza like illness [Unknown]
  - Pruritus [Unknown]
  - Fatigue [Unknown]
  - Neck pain [Unknown]
  - Feeling abnormal [Unknown]
  - Hypophagia [Unknown]
  - Hypokinesia [Unknown]
  - Decreased appetite [Not Recovered/Not Resolved]
  - Ill-defined disorder [Not Recovered/Not Resolved]
  - Cough [Unknown]
  - Dizziness [Unknown]

NARRATIVE: CASE EVENT DATE: 20210101
